FAERS Safety Report 17999542 (Version 3)
Quarter: 2020Q3

REPORT INFORMATION
  Report Type: Spontaneous
  Country: US (occurrence: US)
  Receive Date: 20200709
  Receipt Date: 20200807
  Transmission Date: 20201103
  Serious: No
  Sender: FDA-Public Use
  Company Number: US-GLAXOSMITHKLINE-US2020AMR124263

PATIENT
  Sex: Female

DRUGS (1)
  1. ZEJULA [Suspect]
     Active Substance: NIRAPARIB
     Indication: OVARIAN CANCER
     Dosage: 200 MG, QD
     Dates: start: 20200629

REACTIONS (8)
  - Gastrointestinal disorder [Unknown]
  - Diarrhoea [Recovered/Resolved]
  - Fatigue [Unknown]
  - Product dose omission issue [Unknown]
  - Constipation [Unknown]
  - Dry mouth [Unknown]
  - Blood pressure increased [Not Recovered/Not Resolved]
  - Nausea [Unknown]
